FAERS Safety Report 9311444 (Version 2)
Quarter: 2013Q2

REPORT INFORMATION
  Report Type: Spontaneous
  Country: US (occurrence: US)
  Receive Date: 20130528
  Receipt Date: 20130618
  Transmission Date: 20140414
  Serious: Yes (Hospitalization)
  Sender: FDA-Public Use
  Company Number: US-SANOFI-AVENTIS-2013SA053201

PATIENT
  Age: 66 Year
  Sex: Male

DRUGS (2)
  1. APIDRA [Suspect]
     Indication: TYPE 2 DIABETES MELLITUS
     Route: 058
  2. INSULIN DETEMIR [Suspect]

REACTIONS (3)
  - Adverse event [Unknown]
  - Blood glucose abnormal [Unknown]
  - Drug ineffective [Unknown]
